FAERS Safety Report 20505579 (Version 1)
Quarter: 2022Q1

REPORT INFORMATION
  Report Type: Spontaneous
  Country: US (occurrence: US)
  Receive Date: 20220223
  Receipt Date: 20220223
  Transmission Date: 20220423
  Serious: Yes (Other)
  Sender: FDA-Public Use
  Company Number: US-SA-SAC20220218000371

PATIENT
  Sex: Female

DRUGS (3)
  1. DUPIXENT [Suspect]
     Active Substance: DUPILUMAB
     Indication: Dermatitis atopic
     Dosage: 300 MG, QOW
     Route: 058
     Dates: start: 201907
  2. SULINDAC [Concomitant]
     Active Substance: SULINDAC
     Dosage: STOPPED SULINDAC 3 WEEKS DUE TO BILATERAL KNEE REPLACEMENT SURGERY. I HAVE BEEN BACK ON IT 1 WEEK.
  3. SULINDAC [Concomitant]
     Active Substance: SULINDAC
     Dosage: STOPPED SULINDAC 3 WEEKS DUE TO BILATERAL KNEE REPLACEMENT SURGERY. I HAVE BEEN BACK ON IT 1 WEEK.

REACTIONS (1)
  - Knee arthroplasty [Unknown]
